FAERS Safety Report 18781113 (Version 1)
Quarter: 2021Q1

REPORT INFORMATION
  Report Type: Spontaneous
  Country: US (occurrence: US)
  Receive Date: 20210123
  Receipt Date: 20210123
  Transmission Date: 20210419
  Serious: No
  Sender: FDA-Public Use
  Company Number: None

PATIENT
  Sex: Female

DRUGS (1)
  1. IBRANCE [Suspect]
     Active Substance: PALBOCICLIB
     Indication: BREAST CANCER
     Dosage: ?          OTHER FREQUENCY:DAILY21/28DAYS ;?
     Route: 048
     Dates: start: 20201231

REACTIONS (3)
  - Diarrhoea [None]
  - Drug ineffective [None]
  - Product communication issue [None]
